FAERS Safety Report 9157710 (Version 2)
Quarter: 2013Q1

REPORT INFORMATION
  Report Type: Spontaneous
  Country: JP (occurrence: None)
  Receive Date: 20130211
  Receipt Date: 20130225
  Transmission Date: 20140127
  Serious: Yes (Hospitalization)
  Sender: FDA-Public Use
  Company Number: TCI2013A00239

PATIENT
  Age: 80 Year
  Sex: Male

DRUGS (7)
  1. ALOGLIPTIN BENZOATE [Suspect]
     Indication: TYPE 2 DIABETES MELLITUS
     Route: 048
     Dates: start: 20120203, end: 20120808
  2. BAYASPIRIN [Suspect]
     Indication: THROMBOSIS PROPHYLAXIS
     Route: 048
     Dates: start: 20090227
  3. ADALAT CR [Concomitant]
  4. PREMINENT TABLETS [Concomitant]
  5. URINORM (BENZBROMARONE) [Concomitant]
  6. LOCHOL (FLUVASTATIN SODIUM) [Concomitant]
  7. KREMEZIN (CHARCOAL, ACTIVATED) [Concomitant]

REACTIONS (11)
  - Blood creatinine increased [None]
  - Gastric ulcer [None]
  - Pyloric stenosis [None]
  - Duodenal ulcer [None]
  - Duodenal scarring [None]
  - Gastrointestinal perforation [None]
  - Gastrointestinal haemorrhage [None]
  - Gastritis atrophic [None]
  - Gastric polyps [None]
  - Hiatus hernia [None]
  - Hiatus hernia [None]
